FAERS Safety Report 8811759 (Version 2)
Quarter: 2012Q4

REPORT INFORMATION
  Report Type: 
  Country: US (occurrence: US)
  Receive Date: 20120927
  Receipt Date: 20121031
  Transmission Date: 20130627
  Serious: Yes (Hospitalization)
  Sender: FDA-Public Use
  Company Number: US-ASTRAZENECA-2012SE72659

PATIENT
  Age: 77 Year
  Sex: Male
  Weight: 54.4 kg

DRUGS (11)
  1. SYMBICORT [Suspect]
     Indication: ASTHMA
     Dosage: 2 PUFFS BID
     Route: 055
  2. SYMBICORT [Suspect]
     Indication: ASTHMA
     Dosage: 80 MCG/4.5 MCG, AS NEEDED
     Route: 055
     Dates: start: 20120914
  3. TIKOSYN [Concomitant]
  4. LISINOPRIL [Concomitant]
  5. COUMADIN [Concomitant]
  6. DILANTIN [Concomitant]
  7. CRESTOR [Concomitant]
  8. LUMIGAN [Concomitant]
  9. PILOCARPINE [Concomitant]
  10. REMERON [Concomitant]
  11. COLACE [Concomitant]

REACTIONS (3)
  - Cervical spinal stenosis [Unknown]
  - Blood sodium decreased [Unknown]
  - Off label use [Unknown]
